FAERS Safety Report 8916212 (Version 2)
Quarter: 2013Q1

REPORT INFORMATION
  Report Type: Spontaneous
  Country: FR (occurrence: FR)
  Receive Date: 20121120
  Receipt Date: 20130328
  Transmission Date: 20140127
  Serious: Yes (Hospitalization)
  Sender: FDA-Public Use
  Company Number: FR-GLAXOSMITHKLINE-B0843328A

PATIENT
  Age: 17 Year
  Sex: Female

DRUGS (5)
  1. IMIGRANE [Suspect]
     Indication: MIGRAINE
     Route: 048
     Dates: start: 2010
  2. ATENOLOL [Suspect]
     Indication: TACHYCARDIA
     Dosage: 25MG PER DAY
     Route: 048
  3. PROCORALAN [Suspect]
     Indication: TACHYCARDIA
     Dosage: 5MG TWICE PER DAY
     Route: 048
  4. MINIDRIL [Suspect]
     Indication: ORAL CONTRACEPTION
     Route: 048
     Dates: end: 201206
  5. SORE THROAT TREATMENT [Concomitant]
     Indication: OROPHARYNGEAL PAIN
     Dates: start: 201203

REACTIONS (5)
  - Bone infarction [Recovered/Resolved]
  - Arthralgia [Recovered/Resolved]
  - Arthritis [Recovered/Resolved]
  - Influenza like illness [None]
  - Oropharyngeal pain [None]
